FAERS Safety Report 21441143 (Version 1)
Quarter: 2022Q4

REPORT INFORMATION
  Report Type: Spontaneous
  Country: None (occurrence: US)
  Receive Date: 20221011
  Receipt Date: 20221011
  Transmission Date: 20230113
  Serious: No
  Sender: FDA-Public Use
  Company Number: US-Hill Dermaceuticals, Inc.-2133696

PATIENT
  Age: 72 Year
  Sex: Female

DRUGS (1)
  1. TOLAK [Suspect]
     Active Substance: FLUOROURACIL
     Indication: Actinic keratosis
     Route: 061
     Dates: start: 20220819, end: 20220822

REACTIONS (5)
  - Application site erythema [Unknown]
  - Application site swelling [Unknown]
  - Swelling of eyelid [Unknown]
  - Vision blurred [Unknown]
  - Eye pain [Unknown]

NARRATIVE: CASE EVENT DATE: 20220822
